FAERS Safety Report 4501270-1 (Version None)
Quarter: 2004Q4

REPORT INFORMATION
  Report Type: 
  Country: None (occurrence: None)
  Receive Date: 20040927
  Receipt Date: 20040811
  Transmission Date: 20050328
  Serious: No
  Sender: FDA-Public Use
  Company Number: USA030741602

PATIENT
  Age: 50 Year
  Sex: Female
  Weight: 77 kg

DRUGS (2)
  1. STRATTERA [Suspect]
     Indication: ATTENTION DEFICIT/HYPERACTIVITY DISORDER
     Dates: start: 20030301, end: 20030315
  2. PROZAC [Suspect]
     Indication: DEPRESSION
     Dosage: 40 MG DAY

REACTIONS (6)
  - ARRHYTHMIA [None]
  - DIARRHOEA [None]
  - FEELING ABNORMAL [None]
  - JOINT DISLOCATION [None]
  - NAUSEA [None]
  - VOMITING [None]
